FAERS Safety Report 8446486-7 (Version None)
Quarter: 2012Q2

REPORT INFORMATION
  Report Type: 
  Country: None (occurrence: None)
  Receive Date: 20120618
  Receipt Date: 20120419
  Transmission Date: 20120825
  Serious: No
  Sender: FDA-Public Use
  Company Number: US-TEVA-333690USA

PATIENT
  Sex: Female
  Weight: 68.1 kg

DRUGS (3)
  1. ACTIQ [Suspect]
     Indication: PAIN
     Route: 002
  2. ACTIQ [Suspect]
     Route: 002
     Dates: end: 20120417
  3. ACETAMINOPHEN [Concomitant]
     Indication: PAIN
     Route: 048

REACTIONS (13)
  - IRRITABILITY [None]
  - OFF LABEL USE [None]
  - PAIN [None]
  - HEADACHE [None]
  - NAUSEA [None]
  - BALANCE DISORDER [None]
  - INSOMNIA [None]
  - PRURITUS [None]
  - DRUG PRESCRIBING ERROR [None]
  - ORAL PAIN [None]
  - MALAISE [None]
  - RASH [None]
  - STOMATITIS [None]
